FAERS Safety Report 7029706-5 (Version None)
Quarter: 2010Q4

REPORT INFORMATION
  Report Type: 
  Country: None (occurrence: None)
  Receive Date: 20101005
  Receipt Date: 20101005
  Transmission Date: 20110411
  Serious: Yes (Hospitalization)
  Sender: FDA-Public Use
  Company Number: None

PATIENT
  Age: 83 Year
  Sex: Male
  Weight: 85 kg

DRUGS (2)
  1. GLIPIZIDE [Suspect]
     Indication: DIABETES MELLITUS
     Dosage: 20 MG BID PO
     Route: 048
     Dates: start: 20080801, end: 20101002
  2. INSULIN [Suspect]
     Indication: DIABETES MELLITUS
     Dosage: 5 UNITS EVERY DAY SQ
     Route: 058
     Dates: start: 20100324, end: 20101002

REACTIONS (1)
  - HYPOGLYCAEMIA [None]
